FAERS Safety Report 4428818-X (Version None)
Quarter: 2004Q3

REPORT INFORMATION
  Report Type: 
  Country: None (occurrence: None)
  Receive Date: 20040818
  Receipt Date: 20040518
  Transmission Date: 20050211
  Serious: Yes (Other)
  Sender: FDA-Public Use
  Company Number: JP-GLAXOSMITHKLINE-B0333527A

PATIENT
  Age: 31 Year
  Sex: Male
  Weight: 81 kg

DRUGS (7)
  1. PAXIL [Suspect]
     Route: 048
     Dates: start: 20030426
  2. FLUVOXAMINE MALEATE [Suspect]
     Indication: DEPRESSION
     Dosage: 50MG TWICE PER DAY
     Route: 048
     Dates: start: 20030219, end: 20030425
  3. SULPIRIDE [Suspect]
     Indication: DEPRESSION
     Route: 048
     Dates: start: 20030201, end: 20030525
  4. CLOXAZOLAM [Concomitant]
     Indication: ANXIETY
     Dosage: 2MG PER DAY
     Route: 048
     Dates: start: 20030201
  5. ALLOPURINOL [Concomitant]
     Dosage: 100MG PER DAY
     Route: 048
     Dates: start: 20030208
  6. URSODEOXYCHOLIC ACID [Concomitant]
     Indication: HEPATIC FUNCTION ABNORMAL
     Dosage: 150MG PER DAY
     Route: 048
     Dates: start: 20030208, end: 20040124
  7. ALCOHOL [Concomitant]

REACTIONS (5)
  - AGGRESSION [None]
  - ANXIETY [None]
  - EXCITABILITY [None]
  - IMPULSIVE BEHAVIOUR [None]
  - IRRITABILITY [None]
